FAERS Safety Report 7249738-1 (Version None)
Quarter: 2011Q1

REPORT INFORMATION
  Report Type: 
  Country: None (occurrence: None)
  Receive Date: 20110128
  Receipt Date: 20100330
  Transmission Date: 20110831
  Serious: No
  Sender: FDA-Public Use
  Company Number: A0813627A

PATIENT
  Sex: Male

DRUGS (3)
  1. EFFEXOR [Concomitant]
  2. WELLBUTRIN [Suspect]
     Indication: DEPRESSION
     Dosage: 200MG TWICE PER DAY
     Route: 048
  3. WELLBUTRIN [Suspect]
     Route: 065

REACTIONS (1)
  - NERVOUSNESS [None]
